FAERS Safety Report 11880503 (Version 1)
Quarter: 2015Q4

REPORT INFORMATION
  Report Type: Spontaneous
  Country: BR (occurrence: BR)
  Receive Date: 20151230
  Receipt Date: 20151230
  Transmission Date: 20160305
  Serious: Yes (Other)
  Sender: FDA-Public Use
  Company Number: BR-ELI_LILLY_AND_COMPANY-BR201512002147

PATIENT
  Sex: Male
  Weight: 83 kg

DRUGS (4)
  1. HUMULIN R [Suspect]
     Active Substance: INSULIN HUMAN
     Indication: DIABETES MELLITUS
     Dosage: 60 IU, QD
     Route: 058
     Dates: start: 2005
  2. HUMULIN N [Suspect]
     Active Substance: INSULIN HUMAN
     Indication: DIABETES MELLITUS
     Dosage: 80 IU, QD
     Route: 058
     Dates: start: 2005
  3. HUMULIN N [Suspect]
     Active Substance: INSULIN HUMAN
     Dosage: 80 IU, QD
     Route: 058
     Dates: start: 2005
  4. HUMULIN R [Suspect]
     Active Substance: INSULIN HUMAN
     Dosage: 60 IU, QD
     Route: 058
     Dates: start: 2005

REACTIONS (3)
  - Erysipelas [Unknown]
  - Poor peripheral circulation [Unknown]
  - Diabetes mellitus [Unknown]
